FAERS Safety Report 25660234 (Version 1)
Quarter: 2025Q3

REPORT INFORMATION
  Report Type: Spontaneous
  Country: US (occurrence: None)
  Receive Date: 20250807
  Receipt Date: 20250807
  Transmission Date: 20251021
  Serious: Yes (Hospitalization, Other)
  Sender: FDA-CTU
  Company Number: None

PATIENT
  Age: 67 Year
  Sex: Female

DRUGS (1)
  1. PIQRAY [Suspect]
     Active Substance: ALPELISIB
     Dates: start: 20250402, end: 20250731

REACTIONS (4)
  - Diarrhoea [None]
  - Ageusia [None]
  - Weight decreased [None]
  - Renal impairment [None]

NARRATIVE: CASE EVENT DATE: 20250731
